FAERS Safety Report 8352458-3 (Version None)
Quarter: 2012Q2

REPORT INFORMATION
  Report Type: 
  Country: None (occurrence: None)
  Receive Date: 20120509
  Receipt Date: 20120424
  Transmission Date: 20120825
  Serious: Yes (Hospitalization)
  Sender: FDA-Public Use
  Company Number: 120104

PATIENT
  Age: 82 Year
  Sex: Female
  Weight: 78.9259 kg

DRUGS (9)
  1. LOVASTATIN [Concomitant]
  2. ZETIA [Concomitant]
  3. ASPIRIN [Concomitant]
  4. SUPREP BOWEL PREP KIT [Suspect]
     Indication: COLONOSCOPY
     Dosage: 2X6 OZ. BOTTLE/1XPO
     Route: 048
     Dates: start: 20120307, end: 20120308
  5. MAGNESIUM [Concomitant]
  6. CALCIUM [Concomitant]
  7. SYNTHROID [Concomitant]
  8. FOLIC ACID [Concomitant]
  9. VITAMIN D [Concomitant]

REACTIONS (5)
  - DEHYDRATION [None]
  - NAUSEA [None]
  - RETCHING [None]
  - POLYPECTOMY [None]
  - BLOOD PRESSURE INCREASED [None]
